FAERS Safety Report 22377424 (Version 3)
Quarter: 2023Q4

REPORT INFORMATION
  Report Type: Spontaneous
  Country: JP (occurrence: JP)
  Receive Date: 20230529
  Receipt Date: 20231201
  Transmission Date: 20240109
  Serious: Yes (Other)
  Sender: FDA-Public Use
  Company Number: JP-002147023-NVSJ2023JP008351

PATIENT
  Age: 80 Year
  Sex: Female

DRUGS (1)
  1. LUTATHERA [Suspect]
     Active Substance: LUTETIUM OXODOTREOTIDE LU-177
     Indication: ACTH-producing pituitary tumour
     Dosage: UNK
     Route: 042

REACTIONS (3)
  - Hormone level abnormal [Unknown]
  - Diarrhoea [Recovering/Resolving]
  - Muscular weakness [Recovering/Resolving]
